FAERS Safety Report 5842047-4 (Version None)
Quarter: 2008Q3

REPORT INFORMATION
  Report Type: 
  Country: None (occurrence: None)
  Receive Date: 20080812
  Receipt Date: 20080808
  Transmission Date: 20090109
  Serious: Yes (Life-Threatening)
  Sender: FDA-Public Use
  Company Number: UA-ASTRAZENECA-2008SE03806

PATIENT
  Age: 56 Year
  Sex: Male

DRUGS (1)
  1. MARCAINE [Suspect]
     Indication: ANAESTHESIA
     Dosage: 28 ML
     Dates: start: 20070112, end: 20070123

REACTIONS (4)
  - APNOEA [None]
  - CIRCULATORY COLLAPSE [None]
  - HORNER'S SYNDROME [None]
  - LOSS OF CONSCIOUSNESS [None]
